FAERS Safety Report 9147527 (Version 1)
Quarter: 2013Q1

REPORT INFORMATION
  Report Type: Not Available
  Country: GB (occurrence: GB)
  Receive Date: 20130307
  Receipt Date: 20130307
  Transmission Date: 20140127
  Serious: Yes (Other)
  Sender: FDA-Public Use
  Company Number: GB-PURDUE-GBR-2013-0013362

PATIENT
  Age: 31 Year
  Sex: Male
  Weight: 67 kg

DRUGS (2)
  1. BUPRENORPHINE TRANSDERMAL SYSTEM [Suspect]
     Indication: PRODUCT USED FOR UNKNOWN INDICATION
     Dosage: UNK
     Route: 065
     Dates: start: 20130215
  2. METHADONE [Concomitant]
     Dosage: UNK
     Dates: start: 20121206

REACTIONS (2)
  - Chest discomfort [Unknown]
  - Pharyngeal oedema [Recovered/Resolved]
